FAERS Safety Report 5092598-8 (Version None)
Quarter: 2006Q3

REPORT INFORMATION
  Report Type: 
  Country: None (occurrence: None)
  Receive Date: 20060828
  Receipt Date: 20060815
  Transmission Date: 20061208
  Serious: Yes (Hospitalization, Other)
  Sender: FDA-Public Use
  Company Number: 2006099434

PATIENT
  Sex: Male

DRUGS (12)
  1. ZYVOX [Suspect]
     Indication: ENTEROCOCCAL INFECTION
     Dosage: 1200 MG (600 MG,2 IN 1 D), INTRAVENOUS
     Route: 042
     Dates: start: 20060808
  2. HEPARIN [Suspect]
     Indication: DRUG USE FOR UNKNOWN INDICATION
     Dates: start: 20060811
  3. ACETAMINOPHEN [Concomitant]
  4. ALBUTEROL [Concomitant]
  5. NEXIUM [Concomitant]
  6. FOLIC ACID [Concomitant]
  7. LANTUS [Concomitant]
  8. INSULIN [Concomitant]
  9. METOPROLOL TARTRATE [Concomitant]
  10. NYSTATIN [Concomitant]
  11. RIFAMPICIN [Concomitant]
  12. SULFADIAZINE SILVER (SULFADIAZINE SILVER) [Concomitant]

REACTIONS (4)
  - CELLULITIS [None]
  - HEPARIN-INDUCED THROMBOCYTOPENIA [None]
  - PLATELET COUNT ABNORMAL [None]
  - WHITE BLOOD CELL COUNT ABNORMAL [None]
